FAERS Safety Report 6095291-8 (Version None)
Quarter: 2009Q1

REPORT INFORMATION
  Report Type: 
  Country: None (occurrence: None)
  Receive Date: 20090227
  Receipt Date: 20080229
  Transmission Date: 20090719
  Serious: No
  Sender: FDA-Public Use
  Company Number: A0712753A

PATIENT
  Age: 24 Year
  Sex: Female

DRUGS (4)
  1. LAMICTAL [Suspect]
     Dosage: 150MG PER DAY
     Route: 048
     Dates: start: 20071001
  2. FISH OIL [Concomitant]
  3. VITAMIN [Concomitant]
  4. CALCIUM [Concomitant]

REACTIONS (1)
  - CRYING [None]
